FAERS Safety Report 9917517 (Version 1)
Quarter: 2014Q1

REPORT INFORMATION
  Report Type: Report from Study
  Country: CA (occurrence: CA)
  Receive Date: 20140221
  Receipt Date: 20140221
  Transmission Date: 20141002
  Serious: Yes (Other)
  Sender: FDA-Public Use
  Company Number: CA-JNJFOC-20140212652

PATIENT
  Age: 28 Year
  Sex: Female
  Weight: 129 kg

DRUGS (2)
  1. REMICADE [Suspect]
     Indication: CROHN^S DISEASE
     Dosage: EVERYU 8 WEEK/52
     Route: 042
     Dates: start: 20130820
  2. REMICADE [Suspect]
     Indication: CROHN^S DISEASE
     Dosage: EVERYU 8 WEEK/52
     Route: 042
     Dates: start: 20140218

REACTIONS (3)
  - Exposure during pregnancy [Recovered/Resolved]
  - Abortion spontaneous [Unknown]
  - Muscle spasms [Unknown]
